FAERS Safety Report 9596860 (Version 2)
Quarter: 2013Q4

REPORT INFORMATION
  Report Type: Spontaneous
  Country: IE (occurrence: IE)
  Receive Date: 20131004
  Receipt Date: 20131018
  Transmission Date: 20140711
  Serious: Yes (Life-Threatening, Hospitalization, Disabling, Other)
  Sender: FDA-Public Use
  Company Number: IE-B.I. PHARMACEUTICALS,INC./RIDGEFIELD-2013-BI-31208UK

PATIENT
  Age: 43 Year
  Sex: Male

DRUGS (2)
  1. PRADAXA [Suspect]
     Indication: ATRIAL FIBRILLATION
     Dosage: 300 MG
     Route: 048
     Dates: start: 20130611, end: 20130917
  2. EMCOR [Concomitant]
     Indication: HEART RATE
     Dosage: 2.5 MG
     Dates: start: 20130611, end: 20130917

REACTIONS (1)
  - Acute myocardial infarction [Unknown]
